FAERS Safety Report 17806118 (Version 1)
Quarter: 2020Q2

REPORT INFORMATION
  Report Type: Spontaneous
  Country: CA (occurrence: CA)
  Receive Date: 20200520
  Receipt Date: 20200520
  Transmission Date: 20200714
  Serious: Yes (Other)
  Sender: FDA-Public Use
  Company Number: CA-AUROBINDO-AUR-APL-2020-025073

PATIENT
  Age: 53 Year
  Sex: Male

DRUGS (4)
  1. METOPROLOL. [Concomitant]
     Active Substance: METOPROLOL
     Indication: CORONARY ARTERY DISEASE
     Dosage: 12.5 MILLIGRAM, TWO TIMES A DAY
     Route: 048
  2. LENALIDOMIDE [Suspect]
     Active Substance: LENALIDOMIDE
     Indication: ALLOGENIC STEM CELL TRANSPLANTATION
     Dosage: 10 MILLIGRAM, ONCE A DAY
     Route: 048
  3. BUSULFEX [Suspect]
     Active Substance: BUSULFAN
     Indication: ALLOGENIC STEM CELL TRANSPLANTATION
     Dosage: 242.24 MILLIGRAM, ONCE A DAY
     Route: 042
  4. MELPHALAN. [Suspect]
     Active Substance: MELPHALAN
     Indication: ALLOGENIC STEM CELL TRANSPLANTATION
     Dosage: 277.2 MILLIGRAM, ONCE A DAY
     Route: 042

REACTIONS (1)
  - Squamous cell carcinoma [Recovered/Resolved]
